FAERS Safety Report 6678834-2 (Version None)
Quarter: 2010Q2

REPORT INFORMATION
  Report Type: 
  Country: None (occurrence: None)
  Receive Date: 20100412
  Receipt Date: 20100412
  Transmission Date: 20101027
  Serious: No
  Sender: FDA-Public Use
  Company Number: None

PATIENT

DRUGS (1)
  1. LINDANE [Suspect]

REACTIONS (9)
  - ECONOMIC PROBLEM [None]
  - HERPES ZOSTER [None]
  - LOSS OF CONSCIOUSNESS [None]
  - MALAISE [None]
  - NEOPLASM MALIGNANT [None]
  - NON-HODGKIN'S LYMPHOMA [None]
  - POST-TRAUMATIC STRESS DISORDER [None]
  - PROSTATITIS [None]
  - TONSILLITIS [None]
